FAERS Safety Report 9250753 (Version 1)
Quarter: 2013Q1

REPORT INFORMATION
  Report Type: Spontaneous
  Country: US (occurrence: None)
  Receive Date: 20130305
  Receipt Date: 20130305
  Transmission Date: 20140127
  Serious: Yes (Other)
  Sender: FDA-Public Use
  Company Number: 163-21880-12071152

PATIENT
  Age: 62 Year
  Sex: Male

DRUGS (3)
  1. REVLIMID [Suspect]
     Indication: PLASMA CELL MYELOMA
     Dosage: 25 MG, 1 IN 1 D, PO
     Route: 048
     Dates: start: 201111
  2. SYNTHROID (LEVOTHYROXINE SODIUM) (UNKNOWN) [Concomitant]
     Dosage: 100 UG, 1 IN 1 D, UNK
  3. DEXAMETHASONE (DEXAMETHASONE) (4 MILLIGRAM, TABLETS) [Concomitant]
     Dosage: 40 MG, 1 DAY WEEKLY X3 WEEKS/OFF 1 WEEK, PO
     Route: 048

REACTIONS (1)
  - Cataract [None]
